FAERS Safety Report 18951850 (Version 1)
Quarter: 2021Q1

REPORT INFORMATION
  Report Type: Other
  Country: CA (occurrence: CA)
  Receive Date: 20210301
  Receipt Date: 20210301
  Transmission Date: 20210420
  Serious: Yes (Other)
  Sender: FDA-Public Use
  Company Number: CA-CELLTRION INC.-2021CA002460

PATIENT

DRUGS (22)
  1. HYDROXYCHLOROQUINE SULFATE. [Concomitant]
     Active Substance: HYDROXYCHLOROQUINE SULFATE
  2. TYLENOL [Concomitant]
     Active Substance: ACETAMINOPHEN
     Indication: PREMEDICATION
     Dosage: 650.0 MILLIGRAM
     Route: 048
  3. DIPHENHYDRAMINE. [Concomitant]
     Active Substance: DIPHENHYDRAMINE
     Indication: PREMEDICATION
     Dosage: 50.0 MILLIGRAM
     Route: 048
  4. PANTOPRAZOLE [Concomitant]
     Active Substance: PANTOPRAZOLE
  5. PREDNISONE. [Concomitant]
     Active Substance: PREDNISONE
  6. ROSUVASTATIN CALCIUM. [Concomitant]
     Active Substance: ROSUVASTATIN CALCIUM
  7. TIOTROPIUM BROMIDE [Concomitant]
     Active Substance: TIOTROPIUM BROMIDE
  8. WARFARIN [Concomitant]
     Active Substance: WARFARIN
  9. RITUXIMAB (UNKNOWN) [Suspect]
     Active Substance: RITUXIMAB
     Indication: RHEUMATOID ARTHRITIS
     Dosage: 1000.0 MILLIGRAM
     Route: 042
  10. ACETAMINOPHEN;OXYCODONE HYDROCHLORIDE [Concomitant]
     Active Substance: ACETAMINOPHEN\OXYCODONE HYDROCHLORIDE
  11. IRBESARTAN. [Concomitant]
     Active Substance: IRBESARTAN
     Route: 065
  12. METHYLPREDNISOLONE. [Concomitant]
     Active Substance: METHYLPREDNISOLONE
     Indication: PREMEDICATION
     Dosage: 100.0 MILLIGRAM
     Route: 042
  13. PROLIA [Concomitant]
     Active Substance: DENOSUMAB
     Dosage: 1 EVERY 6 MONTHS
     Route: 065
  14. SOFLAX [Concomitant]
     Active Substance: DOCUSATE
  15. FERROUS FUMARATE [Concomitant]
     Active Substance: FERROUS FUMARATE
  16. METHYLPREDNISOLONE SODIUM SUCCINATE. [Concomitant]
     Active Substance: METHYLPREDNISOLONE SODIUM SUCCINATE
     Indication: PREMEDICATION
     Dosage: 100.0 MILLIGRAM
     Route: 042
  17. ACETAMINOPHEN. [Concomitant]
     Active Substance: ACETAMINOPHEN
     Indication: PREMEDICATION
     Dosage: 650.0 MILLIGRAM
     Route: 048
  18. BENADRYL [Concomitant]
     Active Substance: DIPHENHYDRAMINE HYDROCHLORIDE
     Indication: PREMEDICATION
     Dosage: 50.0 MILLIGRAM
     Route: 048
  19. LYRICA [Concomitant]
     Active Substance: PREGABALIN
  20. CITALOPRAM [Concomitant]
     Active Substance: CITALOPRAM HYDROBROMIDE
  21. CLONAZEPAM. [Concomitant]
     Active Substance: CLONAZEPAM
  22. FORMOTEROL FUMARATE;MOMETASONE FUROATE [Concomitant]
     Active Substance: FORMOTEROL FUMARATE\MOMETASONE FUROATE

REACTIONS (4)
  - C-reactive protein increased [Not Recovered/Not Resolved]
  - Pneumonia [Not Recovered/Not Resolved]
  - Joint swelling [Not Recovered/Not Resolved]
  - Rheumatoid arthritis [Not Recovered/Not Resolved]
